FAERS Safety Report 16241523 (Version 1)
Quarter: 2019Q2

REPORT INFORMATION
  Report Type: Spontaneous
  Country: TR (occurrence: TR)
  Receive Date: 20190426
  Receipt Date: 20190426
  Transmission Date: 20190711
  Serious: Yes (Other)
  Sender: FDA-Public Use
  Company Number: TR-009507513-1904TUR009622

PATIENT
  Age: 42 Year
  Sex: Male
  Weight: 64 kg

DRUGS (1)
  1. DIPROSPAN [Suspect]
     Active Substance: BETAMETHASONE DIPROPIONATE\BETAMETHASONE SODIUM PHOSPHATE
     Dosage: UNK
     Dates: start: 201902

REACTIONS (8)
  - Abdominal pain upper [Unknown]
  - Blood calcium increased [Unknown]
  - Myocardial infarction [Unknown]
  - Hypersensitivity [Not Recovered/Not Resolved]
  - Heart rate increased [Unknown]
  - Ulcer [Unknown]
  - Abdominal pain upper [Not Recovered/Not Resolved]
  - Weight decreased [Unknown]

NARRATIVE: CASE EVENT DATE: 2019
